FAERS Safety Report 6712111-6 (Version None)
Quarter: 2010Q2

REPORT INFORMATION
  Report Type: 
  Country: None (occurrence: None)
  Receive Date: 20100505
  Receipt Date: 20100423
  Transmission Date: 20101027
  Serious: Yes (Hospitalization)
  Sender: FDA-Public Use
  Company Number: US-PFIZER INC-2010044113

PATIENT
  Sex: Male
  Weight: 80 kg

DRUGS (15)
  1. GENOTROPIN [Suspect]
     Indication: IMMUNE RECONSTITUTION SYNDROME
     Dosage: 0.2 MG, 1X/DAY
     Route: 058
     Dates: start: 20100326, end: 20100406
  2. GENOTROPIN [Suspect]
     Dosage: UNK
     Dates: start: 20100413, end: 20100415
  3. CYCLOSPORINE [Concomitant]
     Dosage: 100 MG, 1X/DAY
     Route: 048
  4. CIPROFLOXACIN [Concomitant]
     Dosage: 500 MG, 1X/DAY
     Route: 048
  5. ACYCLOVIR [Concomitant]
     Dosage: 400 MG, 1X/DAY
     Route: 048
  6. VORICONAZOLE [Concomitant]
     Dosage: 200 MG, 2X/DAY
     Route: 048
  7. DAPSONE [Concomitant]
     Dosage: 100 MG, 1X/DAY
     Route: 048
  8. COREG [Concomitant]
     Dosage: 12.5 MG, 2X/DAY
     Route: 048
  9. INSULIN [Concomitant]
     Dosage: UNK
  10. PREDNISONE [Concomitant]
     Dosage: 50 MG, 1X/DAY
     Route: 048
  11. LEVOTHYROXINE [Concomitant]
     Dosage: 125 MG, 1X/DAY
     Route: 048
  12. PANTOPRAZOLE [Concomitant]
     Dosage: 40 MG, 2X/DAY
     Route: 048
  13. URSODIOL [Concomitant]
     Dosage: 300 MG, 2X/DAY
     Route: 048
  14. REGLAN [Concomitant]
     Dosage: 10 MG, ^QACHS^
     Route: 048
  15. INSULIN DETEMIR [Concomitant]
     Dosage: 30 IU, QHS
     Route: 058

REACTIONS (4)
  - HYPERGLYCAEMIA [None]
  - HYPERKALAEMIA [None]
  - RENAL FAILURE [None]
  - THROMBOCYTOPENIA [None]
